FAERS Safety Report 22330793 (Version 1)
Quarter: 2023Q2

REPORT INFORMATION
  Report Type: Spontaneous
  Country: US (occurrence: None)
  Receive Date: 20230515
  Receipt Date: 20230515
  Transmission Date: 20230721
  Serious: No
  Sender: FDA-Public Use
  Company Number: None

PATIENT
  Age: 69 Year
  Sex: Female
  Weight: 76.5 kg

DRUGS (6)
  1. BIMATOPROST [Suspect]
     Active Substance: BIMATOPROST
     Indication: Madarosis
     Dosage: FREQUENCY : DAILY;?
     Route: 061
  2. LEVOTHYROXINE [Concomitant]
     Active Substance: LEVOTHYROXINE
  3. FINASTERIDE [Concomitant]
     Active Substance: FINASTERIDE
  4. MINERALS\VITAMINS [Concomitant]
     Active Substance: MINERALS\VITAMINS
  5. NUTRAFOL [Concomitant]
  6. RESTASIS [Concomitant]
     Active Substance: CYCLOSPORINE

REACTIONS (3)
  - Eye discharge [None]
  - Recalled product [None]
  - Therapeutic product effect decreased [None]

NARRATIVE: CASE EVENT DATE: 20230513
